FAERS Safety Report 6843715-8 (Version None)
Quarter: 2010Q3

REPORT INFORMATION
  Report Type: 
  Country: None (occurrence: None)
  Receive Date: 20100714
  Receipt Date: 20100714
  Transmission Date: 20110219
  Serious: No
  Sender: FDA-Public Use
  Company Number: None

PATIENT
  Sex: Male
  Weight: 98.4306 kg

DRUGS (1)
  1. LISINOPRIL AND HYDROCHLOROTHIAZIDE [Suspect]
     Indication: HYPERTENSION
     Dosage: 1 TAB DAILY BY ORAL ROUTE DAILY
     Route: 048
     Dates: start: 20090127, end: 20090417

REACTIONS (3)
  - BLOOD PRESSURE ABNORMAL [None]
  - COUGH [None]
  - DIZZINESS [None]
